FAERS Safety Report 7346599-7 (Version None)
Quarter: 2011Q1

REPORT INFORMATION
  Report Type: 
  Country: None (occurrence: None)
  Receive Date: 20110311
  Receipt Date: 20110303
  Transmission Date: 20110831
  Serious: Yes (Other)
  Sender: FDA-Public Use
  Company Number: JP-NOVOPROD-324314

PATIENT
  Age: 54 Year
  Sex: Female
  Weight: 68 kg

DRUGS (7)
  1. NOVORAPID CHU [Concomitant]
     Dosage: 4U-4U-4U
  2. KETOPROFEN [Concomitant]
     Indication: OSTEOARTHRITIS
     Dosage: 40 MG, QD
     Dates: start: 20110208
  3. LANTUS [Concomitant]
     Dosage: 10 UNK, QD
  4. NOVORAPID CHU [Concomitant]
     Dosage: 6U-6U-6U
  5. VICTOZA [Suspect]
     Indication: TYPE 2 DIABETES MELLITUS
     Dosage: 0.3 MG, QD
     Route: 058
     Dates: start: 20110205
  6. VICTOZA [Suspect]
     Dosage: 0.6 MG, QD
     Route: 058
     Dates: start: 20110212, end: 20110218
  7. LANTUS [Concomitant]
     Dosage: 6 U, QD

REACTIONS (4)
  - BLOOD ALKALINE PHOSPHATASE INCREASED [None]
  - GAMMA-GLUTAMYLTRANSFERASE INCREASED [None]
  - ABDOMINAL PAIN [None]
  - ABDOMINAL DISCOMFORT [None]
